FAERS Safety Report 4596951-8 (Version None)
Quarter: 2005Q1

REPORT INFORMATION
  Report Type: 
  Country: None (occurrence: None)
  Receive Date: 20050228
  Receipt Date: 20050214
  Transmission Date: 20050727
  Serious: Yes (Hospitalization, Other)
  Sender: FDA-Public Use
  Company Number: 2004116803

PATIENT
  Age: 60 Year
  Sex: Female
  Weight: 62.1428 kg

DRUGS (5)
  1. CELEBREX [Suspect]
     Indication: INTERVERTEBRAL DISC PROTRUSION
     Dosage: 400 MG (200 MG, 2 IN 1 D), ORAL
     Route: 048
     Dates: end: 20040101
  2. CELEBREX [Suspect]
     Indication: OSTEOARTHRITIS
     Dosage: 400 MG (200 MG, 2 IN 1 D), ORAL
     Route: 048
     Dates: end: 20040101
  3. VITAMINS (VITAMINS) [Concomitant]
  4. CALCIUM (CALCIUM) [Concomitant]
  5. ESTROGENS (ESTROGENS) [Concomitant]

REACTIONS (10)
  - ARRHYTHMIA [None]
  - ARTHRALGIA [None]
  - BLOOD PRESSURE INCREASED [None]
  - CARDIAC DISORDER [None]
  - CHOLECYSTECTOMY [None]
  - GASTRIC DISORDER [None]
  - GASTROINTESTINAL ULCER HAEMORRHAGE [None]
  - HEART RATE INCREASED [None]
  - PANCREATITIS [None]
  - SUPRAVENTRICULAR TACHYCARDIA [None]
